FAERS Safety Report 8431422-X (Version None)
Quarter: 2012Q2

REPORT INFORMATION
  Report Type: 
  Country: None (occurrence: None)
  Receive Date: 20120605
  Receipt Date: 20120523
  Transmission Date: 20120825
  Serious: Yes (Life-Threatening)
  Sender: FDA-Public Use
  Company Number: 1298887

PATIENT
  Age: 45 Year
  Sex: Male
  Weight: 38.7825 kg

DRUGS (4)
  1. HYDROCORTISONE [Concomitant]
  2. OXALIPLATIN [Suspect]
     Indication: COLON CANCER METASTATIC
     Dosage: 260 MG MILLIGRAM(S),, INTRAVENOUS (NOT OTHERWISE SPECIFIED)
     Route: 042
     Dates: start: 20111204, end: 20120510
  3. BEVACLIZUMAB [Concomitant]
  4. CHLORPHENIRAMINE MALEATE [Concomitant]

REACTIONS (2)
  - LOSS OF CONSCIOUSNESS [None]
  - BLOOD PRESSURE IMMEASURABLE [None]
